FAERS Safety Report 5758839-6 (Version None)
Quarter: 2008Q2

REPORT INFORMATION
  Report Type: 
  Country: None (occurrence: None)
  Receive Date: 20080602
  Receipt Date: 20080523
  Transmission Date: 20081010
  Serious: Yes (Hospitalization)
  Sender: FDA-Public Use
  Company Number: 2008-01785

PATIENT
  Age: 74 Year
  Sex: Male
  Weight: 72 kg

DRUGS (2)
  1. VELCADE [Suspect]
     Indication: ACUTE MYELOID LEUKAEMIA
  2. TIPIFARNIB(TIPIFARNIB) ORAL DRUG UNSPECIFIED FORM [Suspect]
     Indication: ACUTE MYELOID LEUKAEMIA

REACTIONS (5)
  - BLOOD CREATININE INCREASED [None]
  - FLUID RETENTION [None]
  - HEPATIC NECROSIS [None]
  - HEPATOTOXICITY [None]
  - PYREXIA [None]
